FAERS Safety Report 13358133 (Version 11)
Quarter: 2018Q2

REPORT INFORMATION
  Report Type: Report from Study
  Country: BE (occurrence: BE)
  Receive Date: 20170322
  Receipt Date: 20180615
  Transmission Date: 20180711
  Serious: Yes (Hospitalization)
  Sender: FDA-Public Use
  Company Number: BE-ROCHE-1909101

PATIENT
  Age: 68 Year
  Sex: Male
  Weight: 96 kg

DRUGS (48)
  1. LIPANTHYL [Concomitant]
     Active Substance: FENOFIBRATE
     Route: 065
     Dates: start: 1985
  2. VITAMINE B12 ROCHE [Concomitant]
     Indication: PROPHYLACTIC CHEMOTHERAPY
     Route: 065
     Dates: start: 20161205
  3. DAKTARIN [Concomitant]
     Active Substance: MICONAZOLE NITRATE
     Indication: FUNGAL INFECTION
     Route: 048
     Dates: start: 20170109
  4. DEXAMETHASONE. [Concomitant]
     Active Substance: DEXAMETHASONE
     Indication: PROPHYLACTIC CHEMOTHERAPY
     Route: 065
     Dates: start: 20170212, end: 20170214
  5. EMEND [Concomitant]
     Active Substance: APREPITANT
     Indication: NAUSEA
     Route: 065
     Dates: start: 20170214, end: 20170215
  6. LITICAN [Concomitant]
     Active Substance: ALIZAPRIDE HYDROCHLORIDE
     Indication: NAUSEA
     Route: 065
     Dates: start: 20170214, end: 20170218
  7. OFLOXACINE [Concomitant]
     Active Substance: OFLOXACIN
     Indication: NEUTROPENIA
     Route: 065
     Dates: start: 20170227, end: 20170304
  8. KALIUM RETARD [Concomitant]
     Indication: HYPOKALAEMIA
  9. BURINEX [Concomitant]
     Active Substance: BUMETANIDE
     Route: 065
     Dates: start: 20170404
  10. ASAFLOW [Concomitant]
     Active Substance: ASPIRIN
     Route: 065
     Dates: start: 1991
  11. NOBITEN [Concomitant]
     Active Substance: NEBIVOLOL
     Indication: HYPERTENSION
     Route: 065
     Dates: start: 2000, end: 20170616
  12. D-CURE [Concomitant]
     Active Substance: CHOLECALCIFEROL
     Indication: METASTASES TO BONE
     Route: 065
     Dates: start: 20161205
  13. RBC^S [Concomitant]
     Route: 065
     Dates: start: 20170414, end: 20170418
  14. METFORMAX [Concomitant]
     Active Substance: METFORMIN HYDROCHLORIDE
     Indication: HYPERGLYCAEMIA
     Route: 065
     Dates: start: 1985, end: 20170327
  15. ARANESP [Concomitant]
     Active Substance: DARBEPOETIN ALFA
     Indication: ANAEMIA
     Route: 065
     Dates: start: 20161226
  16. ITRACONAZOLE. [Concomitant]
     Active Substance: ITRACONAZOLE
     Indication: NEUTROPENIA
     Route: 065
     Dates: start: 20170227, end: 20170304
  17. LIDOCAINE HCL [Concomitant]
     Active Substance: LIDOCAINE HYDROCHLORIDE
     Indication: MOUTH ULCERATION
     Route: 065
     Dates: start: 20170313, end: 20170320
  18. TERAZOSAB [Concomitant]
     Indication: PROSTATISM
     Route: 065
     Dates: start: 2006
  19. LORAZEPAN [Concomitant]
     Active Substance: LORAZEPAM
     Indication: INSOMNIA
     Route: 065
     Dates: start: 1985
  20. NOVALGIN (METAMIZOLE SODIUM) [Concomitant]
     Active Substance: METAMIZOLE SODIUM
     Indication: NECK PAIN
     Route: 065
     Dates: start: 201610
  21. DIPIPERON [Concomitant]
     Active Substance: PIPAMPERONE
     Indication: INSOMNIA
     Route: 065
     Dates: start: 20161214
  22. RBC^S [Concomitant]
     Indication: ANAEMIA
     Dosage: 1 UNIT
     Route: 065
     Dates: start: 20170214, end: 20170215
  23. OFLOXACINE [Concomitant]
     Active Substance: OFLOXACIN
     Route: 065
     Dates: start: 20170414, end: 20170419
  24. PEMETREXED. [Suspect]
     Active Substance: PEMETREXED
     Indication: NON-SMALL CELL LUNG CANCER STAGE IV
     Dosage: DATE OF THE MOST RECENT DOSE PRIOR TO THE EVENT ONSET: 06/MAR/2017 OF 1050 MG?INITIAL DOSE PER PROTO
     Route: 042
     Dates: start: 20161212
  25. ZOMETA [Concomitant]
     Active Substance: ZOLEDRONIC ACID
     Indication: METASTASES TO BONE
     Route: 065
     Dates: start: 20161219
  26. ITRACONAZOLE. [Concomitant]
     Active Substance: ITRACONAZOLE
     Route: 065
     Dates: start: 20170313, end: 20170316
  27. NYSTATINE [Concomitant]
     Indication: MOUTH ULCERATION
     Route: 065
     Dates: start: 20170313, end: 20170320
  28. CARBOPLATIN. [Suspect]
     Active Substance: CARBOPLATIN
     Indication: NON-SMALL CELL LUNG CANCER STAGE IV
     Dosage: DATE OF THE MOST RECENT DOSE PRIOR TO THE EVENT ONSET: 23/JAN/2017: 330 MG
     Route: 042
     Dates: start: 20170123
  29. ALLOPURINOL. [Concomitant]
     Active Substance: ALLOPURINOL
     Indication: HYPERURICAEMIA
     Route: 065
     Dates: start: 1986
  30. LITICAN [Concomitant]
     Active Substance: ALIZAPRIDE HYDROCHLORIDE
     Route: 065
     Dates: start: 20170316, end: 20170321
  31. RBC^S [Concomitant]
     Dosage: 2 UNITS
     Route: 065
     Dates: start: 20170314, end: 20170314
  32. RBC^S [Concomitant]
     Route: 065
     Dates: start: 20170317, end: 20170320
  33. ULTRA K [Concomitant]
     Indication: HYPOMAGNESAEMIA
     Route: 065
     Dates: start: 20170228
  34. ALCOHOL. [Concomitant]
     Active Substance: ALCOHOL
     Indication: MOUTH ULCERATION
     Route: 065
     Dates: start: 20170313, end: 20170320
  35. CISPLATIN. [Suspect]
     Active Substance: CISPLATIN
     Indication: NON-SMALL CELL LUNG CANCER STAGE IV
     Dosage: DATE OF THE MOST RECENT DOSE PRIOR TO THE EVENT ONSET: 13/FEB/2017 OF 120 MG?INITIAL DOSE PER PROTOC
     Route: 042
     Dates: start: 20161212
  36. BURINEX [Concomitant]
     Active Substance: BUMETANIDE
     Indication: OEDEMA
     Route: 065
     Dates: start: 20170227, end: 20170322
  37. DEXAMETHASONE. [Concomitant]
     Active Substance: DEXAMETHASONE
     Indication: CHEMOTHERAPY
     Route: 065
     Dates: start: 20170305
  38. OFLOXACINE [Concomitant]
     Active Substance: OFLOXACIN
     Route: 065
     Dates: start: 20170313, end: 20170316
  39. ULTRA K [Concomitant]
     Indication: HYPOKALAEMIA
     Route: 065
     Dates: start: 20170228, end: 20170322
  40. HYPROMELLOSE [Concomitant]
     Active Substance: HYPROMELLOSES
     Indication: MOUTH ULCERATION
     Dosage: 4000
     Route: 065
     Dates: start: 20170313, end: 20170320
  41. GLYCEROL [Concomitant]
     Active Substance: GLYCERIN
     Indication: MOUTH ULCERATION
     Route: 065
     Dates: start: 20170313, end: 20170320
  42. POTASSIUM CHLORIDE. [Concomitant]
     Active Substance: POTASSIUM CHLORIDE
     Route: 065
     Dates: start: 20170418
  43. ATEZOLIZUMAB. [Suspect]
     Active Substance: ATEZOLIZUMAB
     Indication: NON-SMALL CELL LUNG CANCER STAGE IV
     Dosage: DATE OF THE MOST RECENT DOSE PRIOR TO THE EVENT ONSET: 06/MAR/2017?DATE OF THE MOST RECENT DOSE PRIO
     Route: 042
     Dates: start: 20161212
  44. FOLAVIT [Concomitant]
     Active Substance: FOLIC ACID
     Indication: PROPHYLACTIC CHEMOTHERAPY
     Route: 065
     Dates: start: 20161205
  45. RBC^S [Concomitant]
     Route: 065
     Dates: start: 20170228, end: 20170228
  46. ITRACONAZOLE. [Concomitant]
     Active Substance: ITRACONAZOLE
     Route: 065
     Dates: start: 20170415, end: 20170420
  47. TINZAPARIN [Concomitant]
     Active Substance: TINZAPARIN
     Indication: DERMATITIS
     Route: 065
     Dates: start: 20170306
  48. POTASSIUM CHLORIDE. [Concomitant]
     Active Substance: POTASSIUM CHLORIDE
     Indication: HYPOKALAEMIA
     Dosage: 80 MEQ/24H
     Route: 065
     Dates: start: 20170316, end: 20170321

REACTIONS (2)
  - Vasculitis [Recovered/Resolved with Sequelae]
  - Dermatitis [Recovered/Resolved with Sequelae]

NARRATIVE: CASE EVENT DATE: 20170316
